FAERS Safety Report 24110434 (Version 1)
Quarter: 2024Q3

REPORT INFORMATION
  Report Type: Spontaneous
  Country: US (occurrence: US)
  Receive Date: 20240718
  Receipt Date: 20240718
  Transmission Date: 20241016
  Serious: Yes (Hospitalization)
  Sender: BAYER
  Company Number: US-BAYER-2024A101713

PATIENT
  Age: 34 Year
  Sex: Female

DRUGS (3)
  1. MIRENA [Suspect]
     Active Substance: LEVONORGESTREL
     Indication: Eosinophilic oesophagitis
     Dosage: 20?G/DAY
     Route: 015
     Dates: start: 202112
  2. MIRENA [Suspect]
     Active Substance: LEVONORGESTREL
     Indication: Intrauterine contraception
  3. DUPIXENT [Suspect]
     Active Substance: DUPILUMAB

REACTIONS (2)
  - Eosinophilic oesophagitis [None]
  - Dysphagia [None]

NARRATIVE: CASE EVENT DATE: 20240701
